FAERS Safety Report 16061874 (Version 1)
Quarter: 2019Q1

REPORT INFORMATION
  Report Type: Spontaneous
  Country: GB (occurrence: GB)
  Receive Date: 20190312
  Receipt Date: 20190312
  Transmission Date: 20190418
  Serious: Yes (Hospitalization)
  Sender: FDA-Public Use
  Company Number: GB-AUROBINDO-AUR-APL-2019-012308

PATIENT

DRUGS (1)
  1. CIPROFLOXACIN FILM-COATED TABLETS [Suspect]
     Active Substance: CIPROFLOXACIN
     Indication: URINARY TRACT INFECTION
     Dosage: 500 MILLIGRAM
     Route: 048
     Dates: start: 20190129, end: 20190130

REACTIONS (7)
  - Insomnia [Recovered/Resolved]
  - Muscle twitching [Recovered/Resolved]
  - Back pain [Recovered/Resolved]
  - Hypoaesthesia [Recovered/Resolved]
  - Photophobia [Recovered/Resolved]
  - Palpitations [Recovered/Resolved]
  - Tachycardia [Recovered/Resolved]

NARRATIVE: CASE EVENT DATE: 20190129
